FAERS Safety Report 21977794 (Version 1)
Quarter: 2023Q1

REPORT INFORMATION
  Report Type: Spontaneous
  Country: GB (occurrence: GB)
  Receive Date: 20230210
  Receipt Date: 20230210
  Transmission Date: 20230418
  Serious: Yes (Hospitalization, Other)
  Sender: FDA-Public Use
  Company Number: GB-MHRA-MED-202302021506270480-FDZJC

PATIENT
  Age: 39 Year
  Sex: Female

DRUGS (4)
  1. DEXAMETHASONE [Suspect]
     Active Substance: DEXAMETHASONE
     Indication: Product used for unknown indication
     Dosage: 2 MG, SINGLE DOSE
     Route: 065
     Dates: start: 20230123
  2. OXALIPLATIN [Suspect]
     Active Substance: OXALIPLATIN
     Indication: Product used for unknown indication
     Dosage: 200 MG (OVER 2 HOURS)
     Route: 041
  3. ATROPINE [Suspect]
     Active Substance: ATROPINE
     Indication: Cholinergic syndrome
     Dosage: 0.25 MG, PRN
     Route: 058
  4. PALONOSETRON [Suspect]
     Active Substance: PALONOSETRON
     Indication: Product used for unknown indication
     Dosage: 0.5 MG
     Route: 048
     Dates: start: 20230123

REACTIONS (3)
  - Colitis [Recovering/Resolving]
  - Neutropenic sepsis [Recovering/Resolving]
  - Colitis [Recovering/Resolving]

NARRATIVE: CASE EVENT DATE: 20230123
